FAERS Safety Report 25234820 (Version 1)
Quarter: 2025Q2

REPORT INFORMATION
  Report Type: Spontaneous
  Country: US (occurrence: None)
  Receive Date: 20250423
  Receipt Date: 20250423
  Transmission Date: 20250717
  Serious: Yes (Other)
  Sender: FDA-CTU
  Company Number: None

PATIENT
  Age: 46 Year
  Sex: Female

DRUGS (1)
  1. KISQALI [Suspect]
     Active Substance: RIBOCICLIB SUCCINATE
     Dosage: FREQUENCY : DAILY;?
     Route: 048

REACTIONS (4)
  - Somnolence [None]
  - Nausea [None]
  - Pain [None]
  - Malaise [None]

NARRATIVE: CASE EVENT DATE: 20250326
